FAERS Safety Report 7793140-0 (Version None)
Quarter: 2011Q4

REPORT INFORMATION
  Report Type: 
  Country: None (occurrence: None)
  Receive Date: 20111003
  Receipt Date: 20110922
  Transmission Date: 20120403
  Serious: Yes (Other)
  Sender: FDA-Public Use
  Company Number: US-ASTRAZENECA-2011SE56916

PATIENT
  Age: 88 Year
  Sex: Female
  Weight: 78.9 kg

DRUGS (2)
  1. FORTALE [Concomitant]
  2. SYMBICORT [Suspect]
     Indication: DYSPNOEA
     Dosage: 80/4.5 MCG 1 PUFF BID
     Route: 055
     Dates: start: 20110823

REACTIONS (4)
  - PRESYNCOPE [None]
  - DIZZINESS [None]
  - NAUSEA [None]
  - ABDOMINAL DISCOMFORT [None]
